FAERS Safety Report 19733440 (Version 1)
Quarter: 2021Q3

REPORT INFORMATION
  Report Type: Spontaneous
  Country: US (occurrence: US)
  Receive Date: 20210823
  Receipt Date: 20210823
  Transmission Date: 20211014
  Serious: Yes (Hospitalization, Other)
  Sender: FDA-Public Use
  Company Number: US-AUROBINDO-AUR-APL-2021-034999

PATIENT
  Age: 49 Year
  Sex: Female

DRUGS (14)
  1. ALPRAZOLAM. [Suspect]
     Active Substance: ALPRAZOLAM
     Indication: CENTRAL PAIN SYNDROME
     Dosage: 1 MILLIGRAM, TWO TIMES A DAY
     Route: 065
  2. FENTANYL. [Suspect]
     Active Substance: FENTANYL
     Dosage: 25 MCG/HR (EVERY 72 HOURS)
     Route: 065
  3. KETAMINE HYDROCHLORIDE. [Suspect]
     Active Substance: KETAMINE HYDROCHLORIDE
     Dosage: 40 MILLIGRAM, 3 TIMES A DAY (FOR THREE DAYS)
     Route: 048
  4. OXYCODONE [Suspect]
     Active Substance: OXYCODONE
     Indication: CENTRAL PAIN SYNDROME
     Dosage: 30 MILLIGRAM (EVERY 4 HOURS AS NEEDED)
     Route: 065
  5. OXYCODONE [Suspect]
     Active Substance: OXYCODONE
     Dosage: 30 MILLIGRAM (EVERY 4 HOURS TO 20 MG EVERY 4 HOURS)
     Route: 065
  6. AMITRIPTYLINE [Suspect]
     Active Substance: AMITRIPTYLINE
     Indication: CENTRAL PAIN SYNDROME
     Dosage: 25 MILLIGRAM (AT BEDTIME)
     Route: 065
  7. FENTANYL. [Suspect]
     Active Substance: FENTANYL
     Indication: CENTRAL PAIN SYNDROME
     Dosage: 100 MCG/HR (EVERY 48 HOURS)
     Route: 065
  8. KETAMINE HYDROCHLORIDE. [Suspect]
     Active Substance: KETAMINE HYDROCHLORIDE
     Dosage: 30 MILLIGRAM, 3 TIMES A DAY (FOR THREE DAYS)
     Route: 048
  9. PREGABALIN. [Suspect]
     Active Substance: PREGABALIN
     Indication: CENTRAL PAIN SYNDROME
     Dosage: 225 MILLIGRAM, DAILY
     Route: 065
  10. KETAMINE HYDROCHLORIDE. [Suspect]
     Active Substance: KETAMINE HYDROCHLORIDE
     Indication: CENTRAL PAIN SYNDROME
     Dosage: 20 MILLIGRAM, 3 TIMES A DAY (FOR THREE DAYS)
     Route: 048
  11. KETAMINE HYDROCHLORIDE. [Suspect]
     Active Substance: KETAMINE HYDROCHLORIDE
     Dosage: 50 MILLIGRAM, 3 TIMES A DAY
     Route: 048
  12. BACLOFEN. [Suspect]
     Active Substance: BACLOFEN
     Indication: CENTRAL PAIN SYNDROME
     Dosage: 5 MILLIGRAM, DAILY
     Route: 065
  13. DULOXETINE. [Suspect]
     Active Substance: DULOXETINE
     Indication: CENTRAL PAIN SYNDROME
     Dosage: 60 MILLIGRAM, TWO TIMES A DAY
     Route: 065
  14. FENTANYL. [Suspect]
     Active Substance: FENTANYL
     Dosage: 100 MCG/HR (EVERY 48 HOURS)
     Route: 065

REACTIONS (6)
  - Constipation [Unknown]
  - Treatment failure [Unknown]
  - Hyperaesthesia [Unknown]
  - Sedation [Unknown]
  - Fatigue [Recovered/Resolved]
  - Off label use [Unknown]
